FAERS Safety Report 6006958-1 (Version None)
Quarter: 2008Q4

REPORT INFORMATION
  Report Type: 
  Country: None (occurrence: None)
  Receive Date: 20081217
  Receipt Date: 20071203
  Transmission Date: 20090506
  Serious: No
  Sender: FDA-Public Use
  Company Number: US-ASTRAZENECA-2007UW27568

PATIENT
  Age: 60 Year
  Sex: Male
  Weight: 86.2 kg

DRUGS (5)
  1. CRESTOR [Suspect]
     Indication: DYSLIPIDAEMIA
     Route: 048
     Dates: start: 20071129
  2. SOMA [Concomitant]
  3. PERCOCET [Concomitant]
  4. TENORMIN [Concomitant]
  5. LIPITOR [Concomitant]

REACTIONS (2)
  - ARTHRALGIA [None]
  - SHOCK [None]
